FAERS Safety Report 8472638-6 (Version None)
Quarter: 2012Q2

REPORT INFORMATION
  Report Type: 
  Country: None (occurrence: None)
  Receive Date: 20120627
  Receipt Date: 20120510
  Transmission Date: 20120825
  Serious: No
  Sender: FDA-Public Use
  Company Number: US-AMGEN-USASP2012029992

PATIENT
  Age: 38 Year
  Sex: Male

DRUGS (2)
  1. ANTIVIRALS FOR TREATMENT OF HIV INFECTIONS, C [Concomitant]
     Indication: HIV INFECTION
  2. PROCRIT [Suspect]
     Indication: RENAL FAILURE CHRONIC
     Dosage: 4000 IU, 3 TIMES/WK
     Dates: start: 20120417

REACTIONS (1)
  - BLOOD POTASSIUM INCREASED [None]
